FAERS Safety Report 7312515-7 (Version None)
Quarter: 2011Q1

REPORT INFORMATION
  Report Type: 
  Country: None (occurrence: None)
  Receive Date: 20110224
  Receipt Date: 20110217
  Transmission Date: 20110831
  Serious: Yes (Hospitalization)
  Sender: FDA-Public Use
  Company Number: US-SANOFI-AVENTIS-2011SA000576

PATIENT
  Sex: Female

DRUGS (6)
  1. LANTUS [Suspect]
     Dosage: DOSE:11 UNIT(S)
     Route: 058
     Dates: start: 20101228
  2. ZOCOR [Concomitant]
  3. ANTIHYPERTENSIVES [Concomitant]
  4. SOLOSTAR [Suspect]
     Dates: start: 20101228
  5. SYNTHROID [Concomitant]
     Indication: HYPOTHYROIDISM
  6. HUMALOG [Concomitant]

REACTIONS (3)
  - TRANSIENT ISCHAEMIC ATTACK [None]
  - BLOOD GLUCOSE INCREASED [None]
  - PRODUCT QUALITY ISSUE [None]
